FAERS Safety Report 24785306 (Version 1)
Quarter: 2024Q4

REPORT INFORMATION
  Report Type: Spontaneous
  Country: FR (occurrence: FR)
  Receive Date: 20241228
  Receipt Date: 20241228
  Transmission Date: 20250114
  Serious: Yes (Hospitalization)
  Sender: TEVA
  Company Number: None

PATIENT
  Age: 29 Year
  Sex: Male

DRUGS (5)
  1. BUPRENORPHINE [Suspect]
     Active Substance: BUPRENORPHINE
     Indication: Product used for unknown indication
     Dosage: ^STREET^ BUPRENORPHINE: BETWEEN 4 AND 6 MG/DAY ON HEROIN-FREE DAYS
     Route: 065
  2. COCAINE [Suspect]
     Active Substance: COCAINE
     Indication: Product used for unknown indication
     Dosage: 2 TO 3 GRAMS PER DAY
     Route: 065
     Dates: start: 2015
  3. COCAINE [Suspect]
     Active Substance: COCAINE
     Indication: Product used for unknown indication
     Route: 045
     Dates: start: 2013, end: 2015
  4. MIDOMAFETAMINE [Suspect]
     Active Substance: MIDOMAFETAMINE
     Indication: Product used for unknown indication
     Dosage: NO OTHER INFO
     Route: 045
     Dates: start: 2013
  5. HEROIN [Suspect]
     Active Substance: DIAMORPHINE
     Indication: Product used for unknown indication
     Dosage: CURRENTLY 1G/DAY WHEN HE CAN^T FIND BUPRENORPHINE
     Route: 045
     Dates: start: 2017

REACTIONS (5)
  - Peripheral nerve injury [Recovering/Resolving]
  - Drug abuse [Not Recovered/Not Resolved]
  - Gun shot wound [Recovering/Resolving]
  - Tendon injury [Recovering/Resolving]
  - Radius fracture [Recovering/Resolving]

NARRATIVE: CASE EVENT DATE: 20090101
